FAERS Safety Report 23182571 (Version 1)
Quarter: 2023Q4

REPORT INFORMATION
  Report Type: Spontaneous
  Country: US (occurrence: US)
  Receive Date: 20231114
  Receipt Date: 20231114
  Transmission Date: 20240110
  Serious: No
  Sender: FDA-Public Use
  Company Number: US-OptiNose US, Inc-2023OPT000146

PATIENT
  Age: 48 Year
  Sex: Male

DRUGS (1)
  1. XHANCE [Suspect]
     Active Substance: FLUTICASONE PROPIONATE
     Indication: Nasal polyps
     Dosage: UNKNOWN
     Route: 045
     Dates: start: 202105

REACTIONS (1)
  - Breathing-related sleep disorder [Unknown]

NARRATIVE: CASE EVENT DATE: 20210701
